FAERS Safety Report 17150200 (Version 4)
Quarter: 2023Q1

REPORT INFORMATION
  Report Type: Report from Study
  Country: US (occurrence: None)
  Receive Date: 20191213
  Receipt Date: 20230207
  Transmission Date: 20230417
  Serious: Yes (Hospitalization)
  Sender: FDA-Public Use
  Company Number: US-ROCHE-2493199

PATIENT
  Age: 67 Year
  Sex: Male
  Weight: 122.1 kg

DRUGS (14)
  1. OBINUTUZUMAB [Suspect]
     Active Substance: OBINUTUZUMAB
     Indication: Chronic lymphocytic leukaemia
     Dosage: 100 MG IV ON DAY 1, CYCLE 1?900 MG IV ON DAY 2, CYCLE 1?1000 MG IV ON DAY 8, CYCLE 1?1000 MG IV ON D
     Route: 042
     Dates: start: 20190415
  2. VENETOCLAX [Suspect]
     Active Substance: VENETOCLAX
     Indication: Chronic lymphocytic leukaemia
     Dosage: 20 MG PO QD DAYS 1-7 CYCLE 3?50 MG PO QD DAYS 8-14, CYCLE 3?100 MG PO QD DAYS 15-21, CYCLE 3?200 MG
     Route: 048
     Dates: start: 20190415
  3. VENETOCLAX [Suspect]
     Active Substance: VENETOCLAX
     Route: 048
     Dates: start: 20191002, end: 20191023
  4. VENETOCLAX [Suspect]
     Active Substance: VENETOCLAX
     Route: 048
     Dates: start: 20191203
  5. IBRUTINIB [Suspect]
     Active Substance: IBRUTINIB
     Indication: Chronic lymphocytic leukaemia
     Dosage: 1-28, CYCLES 1-19?ON 02/SEP/2019, HE RECEIVED LAST DOSE OF ORAL IBRUTINIB PRIOR TO THE ONSET OF ADVE
     Route: 048
     Dates: start: 20190415
  6. AZELAIC ACID [Concomitant]
     Active Substance: AZELAIC ACID
  7. LISINOPRIL [Concomitant]
     Active Substance: LISINOPRIL
  8. ACYCLOVIR [Concomitant]
     Active Substance: ACYCLOVIR
  9. BENZOYL PEROXIDE [Concomitant]
     Active Substance: BENZOYL PEROXIDE
  10. CLINDAMYCIN [Concomitant]
     Active Substance: CLINDAMYCIN
  11. FUROSEMIDE [Concomitant]
     Active Substance: FUROSEMIDE
  12. IVERMECTIN [Concomitant]
     Active Substance: IVERMECTIN
  13. METRONIDAZOLE [Concomitant]
     Active Substance: METRONIDAZOLE
  14. TRIAMCINOLONE ACETONIDE [Concomitant]
     Active Substance: TRIAMCINOLONE ACETONIDE

REACTIONS (3)
  - Generalised oedema [Recovering/Resolving]
  - Portal hypertension [Unknown]
  - Ascites [Unknown]

NARRATIVE: CASE EVENT DATE: 20190903
